FAERS Safety Report 5103556-9 (Version None)
Quarter: 2006Q3

REPORT INFORMATION
  Report Type: 
  Country: None (occurrence: None)
  Receive Date: 20060913
  Receipt Date: 20060530
  Transmission Date: 20061208
  Serious: Yes (Other)
  Sender: FDA-Public Use
  Company Number: GB-NOVOPROD-253706

PATIENT
  Age: 44 Year
  Sex: Female
  Weight: 74 kg

DRUGS (3)
  1. NOVORAPID PENFILL [Suspect]
     Indication: DIABETES MELLITUS
     Dosage: 18 IU, UNK
     Route: 058
     Dates: start: 20060403, end: 20060504
  2. LISINOPRIL [Concomitant]
     Dosage: 5 MG, QD
     Route: 048
     Dates: start: 19980304
  3. INSULIN GLARGINE [Concomitant]
     Dosage: 18 IU, QD
     Dates: start: 19950424

REACTIONS (4)
  - JOINT SWELLING [None]
  - NAUSEA [None]
  - SWELLING FACE [None]
  - URTICARIA [None]
